FAERS Safety Report 7562463-2 (Version None)
Quarter: 2011Q2

REPORT INFORMATION
  Report Type: 
  Country: None (occurrence: None)
  Receive Date: 20110525
  Receipt Date: 20110404
  Transmission Date: 20111010
  Serious: No
  Sender: FDA-Public Use
  Company Number: 326128

PATIENT
  Age: 58 Year
  Sex: Female

DRUGS (1)
  1. VICTOZA [Suspect]
     Indication: TYPE 1 DIABETES MELLITUS
     Dosage: SUBCUTAN-PUMP
     Route: 058

REACTIONS (3)
  - INCREASED APPETITE [None]
  - DECREASED APPETITE [None]
  - DRUG INEFFECTIVE [None]
